FAERS Safety Report 26036772 (Version 1)
Quarter: 2025Q4

REPORT INFORMATION
  Report Type: Spontaneous
  Country: US (occurrence: US)
  Receive Date: 20251112
  Receipt Date: 20251112
  Transmission Date: 20260117
  Serious: No
  Sender: PARATEK PHARMACEUTICALS
  Company Number: US-PARATEK PHARMACEUTICALS, INC.-2025PTK01252

PATIENT
  Age: 64 Year
  Sex: Male

DRUGS (3)
  1. OMADACYCLINE [Suspect]
     Active Substance: OMADACYCLINE
  2. CIPROFLOXACIN [Suspect]
     Active Substance: CIPROFLOXACIN
  3. AMIKACIN [Suspect]
     Active Substance: AMIKACIN

REACTIONS (2)
  - Treatment failure [Unknown]
  - Drug ineffective [Unknown]
